FAERS Safety Report 8445796-7 (Version None)
Quarter: 2012Q2

REPORT INFORMATION
  Report Type: 
  Country: None (occurrence: None)
  Receive Date: 20120618
  Receipt Date: 20120612
  Transmission Date: 20120825
  Serious: Yes (Hospitalization, Other)
  Sender: FDA-Public Use
  Company Number: JP-PFIZER INC-2012039896

PATIENT
  Age: 84 Year
  Sex: Male
  Weight: 58.5 kg

DRUGS (4)
  1. LYRICA [Suspect]
     Indication: BACK PAIN
     Dosage: UNK
     Route: 048
     Dates: start: 20111212, end: 20111217
  2. MUCOSTA [Suspect]
     Dosage: UNK
     Route: 048
  3. ATELEC [Suspect]
     Dosage: UNK
     Route: 048
  4. ACETAMINOPHEN [Suspect]
     Dosage: UNK
     Route: 048

REACTIONS (4)
  - DIZZINESS [None]
  - INTERSTITIAL LUNG DISEASE [None]
  - COUGH [None]
  - DIZZINESS POSTURAL [None]
